FAERS Safety Report 14522504 (Version 7)
Quarter: 2019Q2

REPORT INFORMATION
  Report Type: Report from Study
  Country: US (occurrence: US)
  Receive Date: 20180212
  Receipt Date: 20190610
  Transmission Date: 20190711
  Serious: Yes (Hospitalization)
  Sender: FDA-Public Use
  Company Number: US-ACTELION-A-US2018-167494

PATIENT
  Age: 48 Year
  Sex: Female
  Weight: 96.6 kg

DRUGS (4)
  1. LETAIRIS [Concomitant]
     Active Substance: AMBRISENTAN
  2. REVATIO [Concomitant]
     Active Substance: SILDENAFIL CITRATE
  3. VENTAVIS [Suspect]
     Active Substance: ILOPROST
     Indication: PULMONARY ARTERIAL HYPERTENSION
     Dosage: 5 MCG, 6-9 TIMES DAILY
     Route: 055
  4. COUMADIN [Concomitant]
     Active Substance: WARFARIN SODIUM

REACTIONS (16)
  - Condition aggravated [Unknown]
  - Cough [Unknown]
  - Pharyngitis streptococcal [Unknown]
  - Fatigue [Unknown]
  - Pneumonia [Unknown]
  - Chest discomfort [Recovered/Resolved]
  - Influenza [Unknown]
  - Dyspnoea [Unknown]
  - Oedema [Unknown]
  - Palpitations [Unknown]
  - Chest pain [Unknown]
  - Somnolence [Unknown]
  - Upper respiratory tract infection [Unknown]
  - Pyrexia [Unknown]
  - Respiratory tract infection [Unknown]
  - Heart rate increased [Unknown]

NARRATIVE: CASE EVENT DATE: 201801
